FAERS Safety Report 25164875 (Version 3)
Quarter: 2025Q2

REPORT INFORMATION
  Report Type: Report from Study
  Country: GB (occurrence: GB)
  Receive Date: 20250406
  Receipt Date: 20250417
  Transmission Date: 20250716
  Serious: Yes (Hospitalization)
  Sender: JOHNSON AND JOHNSON
  Company Number: GB-BAYER-2025A043715

PATIENT
  Sex: Female

DRUGS (1)
  1. VENTAVIS [Suspect]
     Active Substance: ILOPROST
     Indication: Pulmonary hypertension
     Route: 055
     Dates: start: 20250325

REACTIONS (2)
  - Oxygen saturation decreased [Recovering/Resolving]
  - Cardiac failure [Not Recovered/Not Resolved]
